FAERS Safety Report 4356567-5 (Version None)
Quarter: 2004Q2

REPORT INFORMATION
  Report Type: 
  Country: None (occurrence: None)
  Receive Date: 20040510
  Receipt Date: 20040510
  Transmission Date: 20050107
  Serious: Yes (Other)
  Sender: FDA-Public Use
  Company Number: None

PATIENT
  Weight: 61.2356 kg

DRUGS (2)
  1. PAXIL CR [Suspect]
     Indication: AGITATION
     Dosage: 1 DAILY
     Dates: start: 20021002, end: 20040509
  2. PAXIL CR [Suspect]
     Indication: FAMILY STRESS
     Dosage: 1 DAILY
     Dates: start: 20021002, end: 20040509

REACTIONS (1)
  - ACTIVITIES OF DAILY LIVING IMPAIRED [None]
